FAERS Safety Report 6154330-6 (Version None)
Quarter: 2009Q2

REPORT INFORMATION
  Report Type: 
  Country: None (occurrence: None)
  Receive Date: 20090414
  Receipt Date: 20090407
  Transmission Date: 20091009
  Serious: Yes (Other)
  Sender: FDA-Public Use
  Company Number: CA-JNJFOC-20090402570

PATIENT

DRUGS (3)
  1. METHYLPHENIDATE HCL [Suspect]
     Dosage: FOR 11 DAYS
     Route: 048
  2. METHYLPHENIDATE HCL [Suspect]
     Indication: APATHY
     Dosage: FOR 3 DAYS
     Route: 048
  3. DEXTROAMPHETAMINE [Concomitant]
     Indication: DRUG USE FOR UNKNOWN INDICATION
     Route: 048

REACTIONS (6)
  - AGGRESSION [None]
  - AGITATION [None]
  - ANGER [None]
  - DELIRIUM [None]
  - DELUSION [None]
  - FLUSHING [None]
